FAERS Safety Report 19446744 (Version 1)
Quarter: 2021Q2

REPORT INFORMATION
  Report Type: Spontaneous
  Country: US (occurrence: US)
  Receive Date: 20210620
  Receipt Date: 20210620
  Transmission Date: 20210717
  Serious: Yes (Life-Threatening, Hospitalization)
  Sender: FDA-Public Use
  Company Number: None

PATIENT
  Age: 45 Year
  Sex: Female
  Weight: 70.65 kg

DRUGS (4)
  1. REMERON [Suspect]
     Active Substance: MIRTAZAPINE
  2. CYMBALTA [Suspect]
     Active Substance: DULOXETINE HYDROCHLORIDE
     Indication: MENTAL DISORDER
  3. ABILIFY [Suspect]
     Active Substance: ARIPIPRAZOLE
     Indication: MENTAL DISORDER
  4. ALEVE [Concomitant]
     Active Substance: NAPROXEN SODIUM

REACTIONS (8)
  - Vision blurred [None]
  - Dizziness [None]
  - Aphasia [None]
  - Nausea [None]
  - Disorientation [None]
  - Chest discomfort [None]
  - Pain in jaw [None]
  - Communication disorder [None]

NARRATIVE: CASE EVENT DATE: 20190320
